FAERS Safety Report 8869577 (Version 1)
Quarter: 2012Q4

REPORT INFORMATION
  Report Type: 
  Country: US (occurrence: US)
  Receive Date: 20121028
  Receipt Date: 20121028
  Transmission Date: 20130627
  Serious: No
  Sender: FDA-Public Use
  Company Number: US-BAYER-2012-112455

PATIENT
  Age: 63 Year
  Sex: Female
  Weight: 90.7 kg

DRUGS (5)
  1. ALEVE CAPLET/TABLET,MIDOL EXTENDED RELIEF CAPLET [Suspect]
     Indication: ARTHRITIS
     Dosage: 3 DF, QD
     Route: 048
     Dates: start: 201204, end: 20121019
  2. ALEVE CAPLET/TABLET,MIDOL EXTENDED RELIEF CAPLET [Suspect]
     Indication: ARTHRITIS
     Dosage: 4 DF, UNK
     Route: 048
     Dates: start: 20121019, end: 20121019
  3. TRAMADOL [Concomitant]
  4. IBUPROFEN [Concomitant]
  5. LISINOPRIL [Concomitant]

REACTIONS (2)
  - Arthritis [None]
  - No adverse event [None]
